FAERS Safety Report 9483042 (Version 1)
Quarter: 2013Q3

REPORT INFORMATION
  Report Type: Spontaneous
  Country: US (occurrence: US)
  Receive Date: 20130828
  Receipt Date: 20130828
  Transmission Date: 20140515
  Serious: Yes (Other)
  Sender: FDA-Public Use
  Company Number: US-AMGEN-US078273

PATIENT
  Age: 60 Year
  Sex: Female

DRUGS (4)
  1. ENBREL [Suspect]
     Indication: RHEUMATOID ARTHRITIS
     Dosage: 25 MG, 2 TIMES/WK
     Route: 058
     Dates: start: 20000101, end: 20040202
  2. AZITHROMYCIN [Concomitant]
  3. FLUTICASONE/SALMETEROL [Concomitant]
  4. OXYGEN [Concomitant]

REACTIONS (3)
  - Emphysema [Unknown]
  - Anaemia [Unknown]
  - Respiratory tract infection [Unknown]
